FAERS Safety Report 22161912 (Version 1)
Quarter: 2023Q1

REPORT INFORMATION
  Report Type: Other
  Country: None (occurrence: US)
  Receive Date: 20230331
  Receipt Date: 20230331
  Transmission Date: 20230418
  Serious: Yes (Life-Threatening)
  Sender: FDA-Public Use
  Company Number: US-B.Braun Medical Inc.-2139758

PATIENT
  Age: 69 Year

DRUGS (3)
  1. LIDOCAINE HYDROCHLORIDE AND DEXTROSE [Suspect]
     Active Substance: LIDOCAINE HYDROCHLORIDE
     Indication: Ventricular tachycardia
  2. AMIODARONE [Suspect]
     Active Substance: AMIODARONE
  3. ESMOLOL [Suspect]
     Active Substance: ESMOLOL HYDROCHLORIDE

REACTIONS (1)
  - Drug ineffective [Unknown]
